FAERS Safety Report 9163292 (Version 1)
Quarter: 2013Q1

REPORT INFORMATION
  Report Type: Spontaneous
  Country: US (occurrence: None)
  Receive Date: 20130313
  Receipt Date: 20130313
  Transmission Date: 20140127
  Serious: Yes (Hospitalization)
  Sender: FDA-Public Use
  Company Number: None

PATIENT
  Age: 95 Year
  Sex: Female
  Weight: 52 kg

DRUGS (8)
  1. WARFARIN [Suspect]
     Indication: PULMONARY EMBOLISM
     Dosage: 3 MG ALTERNATE WITH 4MG DAILY PO?PRIOR TO ADMISSION
  2. ACETAMINOPHEN WITH CODEINE [Concomitant]
  3. BIOTIN [Concomitant]
  4. CHOLECALCIFEROL [Concomitant]
  5. VITAMIN E [Concomitant]
  6. TOLTERODINE [Concomitant]
  7. LEVOTHYROXINE [Concomitant]
  8. FENOFIBRATE [Concomitant]

REACTIONS (4)
  - Contusion [None]
  - Haematoma [None]
  - Urinary tract infection [None]
  - International normalised ratio increased [None]
